FAERS Safety Report 24876033 (Version 1)
Quarter: 2025Q1

REPORT INFORMATION
  Report Type: Spontaneous
  Country: DE (occurrence: DE)
  Receive Date: 20250123
  Receipt Date: 20250123
  Transmission Date: 20250409
  Serious: Yes (Other)
  Sender: ROCHE
  Company Number: None

PATIENT
  Age: 85 Year
  Sex: Male

DRUGS (1)
  1. AVASTIN [Suspect]
     Active Substance: BEVACIZUMAB
     Indication: Breast cancer female
     Route: 065
     Dates: start: 20241230

REACTIONS (1)
  - Conjunctival haemorrhage [Unknown]

NARRATIVE: CASE EVENT DATE: 20241230
